FAERS Safety Report 6871434-0 (Version None)
Quarter: 2010Q3

REPORT INFORMATION
  Report Type: 
  Country: None (occurrence: None)
  Receive Date: 20100723
  Receipt Date: 20100714
  Transmission Date: 20110219
  Serious: Yes (Hospitalization)
  Sender: FDA-Public Use
  Company Number: US-ABBOTT-10P-163-0658011-00

PATIENT
  Sex: Female
  Weight: 53.118 kg

DRUGS (6)
  1. HUMIRA [Suspect]
     Indication: CROHN'S DISEASE
     Dates: start: 20080601, end: 20081201
  2. HUMIRA [Suspect]
     Dates: start: 20090101
  3. MULTI-VITAMIN [Concomitant]
     Indication: VITAMIN SUPPLEMENTATION
  4. QUESTRAN [Concomitant]
     Indication: DIARRHOEA
  5. OXYCONTIN [Concomitant]
     Indication: PAIN
  6. RECLAST [Concomitant]
     Indication: OSTEOPOROSIS

REACTIONS (12)
  - ANAEMIA [None]
  - BLOOD CREATININE INCREASED [None]
  - BLOOD UREA INCREASED [None]
  - DEHYDRATION [None]
  - FISTULA [None]
  - NAUSEA [None]
  - OESOPHAGITIS [None]
  - RENAL FAILURE ACUTE [None]
  - SMALL INTESTINAL OBSTRUCTION [None]
  - URINARY TRACT INFECTION [None]
  - VOMITING [None]
  - WEIGHT DECREASED [None]
